FAERS Safety Report 24267900 (Version 2)
Quarter: 2024Q3

REPORT INFORMATION
  Report Type: Report from Study
  Country: US (occurrence: US)
  Receive Date: 20240830
  Receipt Date: 20240918
  Transmission Date: 20241017
  Serious: No
  Sender: ALEXION PHARMACEUTICALS
  Company Number: US-AstraZeneca-CH-00691600A

PATIENT
  Age: 38 Year
  Sex: Female

DRUGS (2)
  1. STRENSIQ [Suspect]
     Active Substance: ASFOTASE ALFA
     Indication: Product used for unknown indication
     Dosage: 80 MILLIGRAM, TIW
     Route: 058
     Dates: start: 20240812
  2. STRENSIQ [Suspect]
     Active Substance: ASFOTASE ALFA
     Dosage: 74 MILLIGRAM, TIW
     Route: 058

REACTIONS (8)
  - Pain [Recovered/Resolved]
  - Asthenia [Not Recovered/Not Resolved]
  - Myalgia [Unknown]
  - Rhinitis [Unknown]
  - Dizziness [Recovered/Resolved]
  - Fatigue [Recovered/Resolved]
  - Nervousness [Unknown]
  - Arthralgia [Unknown]

NARRATIVE: CASE EVENT DATE: 20240821
